FAERS Safety Report 6328079-0 (Version None)
Quarter: 2009Q3

REPORT INFORMATION
  Report Type: 
  Country: None (occurrence: None)
  Receive Date: 20090825
  Receipt Date: 20081119
  Transmission Date: 20100115
  Serious: No
  Sender: FDA-Public Use
  Company Number: US-ABBOTT-08P-163-0482580-00

PATIENT
  Sex: Female
  Weight: 60.382 kg

DRUGS (10)
  1. SYNTHROID [Suspect]
     Indication: HYPOTHYROIDISM
     Dosage: ONE HALF TABLET DAILY
     Route: 048
     Dates: start: 20080716, end: 20080826
  2. SYNTHROID [Suspect]
     Route: 048
     Dates: start: 20080827
  3. LANSOPRAZOLE [Concomitant]
     Indication: GASTROOESOPHAGEAL REFLUX DISEASE
  4. SALBUTAMOL [Concomitant]
     Indication: ASTHMA
  5. ATENOLOL [Concomitant]
     Indication: HEART RATE IRREGULAR
  6. LORAZEPAM [Concomitant]
     Indication: ANXIOLYTIC THERAPY
  7. CENTRUM [Concomitant]
     Indication: DRUG USE FOR UNKNOWN INDICATION
  8. ASCORBIC ACID [Concomitant]
     Indication: DRUG USE FOR UNKNOWN INDICATION
  9. MAGNESIUM CHLORIDE ANHYDROUS [Concomitant]
     Indication: DRUG USE FOR UNKNOWN INDICATION
  10. B-KOMPLEX [Concomitant]
     Indication: DRUG USE FOR UNKNOWN INDICATION

REACTIONS (3)
  - ALOPECIA [None]
  - DYSMENORRHOEA [None]
  - METRORRHAGIA [None]
